FAERS Safety Report 5002943-7 (Version None)
Quarter: 2006Q2

REPORT INFORMATION
  Report Type: 
  Country: None (occurrence: None)
  Receive Date: 20060516
  Receipt Date: 20060515
  Transmission Date: 20061013
  Serious: Yes (Hospitalization)
  Sender: FDA-Public Use
  Company Number: BR-GLAXOSMITHKLINE-A0605657A

PATIENT
  Age: 58 Year
  Sex: Female

DRUGS (1)
  1. WELLBUTRIN [Suspect]
     Indication: SUICIDE ATTEMPT
     Route: 048
     Dates: start: 20060513, end: 20060513

REACTIONS (3)
  - SOMNOLENCE [None]
  - SUICIDE ATTEMPT [None]
  - TREMOR [None]
